FAERS Safety Report 7678810-7 (Version None)
Quarter: 2011Q3

REPORT INFORMATION
  Report Type: 
  Country: None (occurrence: None)
  Receive Date: 20110811
  Receipt Date: 20110802
  Transmission Date: 20111222
  Serious: Yes (Other)
  Sender: FDA-Public Use
  Company Number: US-ASTRAZENECA-2011SE10350

PATIENT
  Age: 48 Year
  Sex: Female

DRUGS (3)
  1. ZANTAC [Concomitant]
  2. NEXIUM [Suspect]
     Dosage: ONCE PER DAILY
     Route: 048
  3. NEXIUM [Suspect]
     Dosage: TWICE DAILY
     Route: 048

REACTIONS (10)
  - REGURGITATION [None]
  - ERUCTATION [None]
  - ABDOMINAL PAIN [None]
  - HAEMOPTYSIS [None]
  - DRUG DOSE OMISSION [None]
  - GASTROOESOPHAGEAL REFLUX DISEASE [None]
  - DIARRHOEA [None]
  - MALAISE [None]
  - INCORRECT DOSE ADMINISTERED [None]
  - NAUSEA [None]
